FAERS Safety Report 5125329-3 (Version None)
Quarter: 2006Q4

REPORT INFORMATION
  Report Type: 
  Country: None (occurrence: None)
  Receive Date: 20061011
  Receipt Date: 20061003
  Transmission Date: 20070319
  Serious: Yes (Other)
  Sender: FDA-Public Use
  Company Number: US-ABBOTT-06P-163-0345672-00

PATIENT
  Sex: Female

DRUGS (6)
  1. TRICOR [Suspect]
     Indication: BLOOD TRIGLYCERIDES
     Route: 048
     Dates: start: 20060624, end: 20060817
  2. TRICOR [Suspect]
     Indication: BLOOD CHOLESTEROL
  3. TOPROL-XL [Concomitant]
     Indication: BLOOD PRESSURE
     Route: 048
     Dates: start: 20040101
  4. ROSIGLITAZONE MALEATE [Concomitant]
     Indication: DIABETES MELLITUS
     Route: 048
     Dates: start: 20040101
  5. LOTREL [Concomitant]
     Indication: BLOOD PRESSURE
     Dosage: 5/20 MILLIGRAMS
     Route: 048
     Dates: start: 20040101
  6. METFORMIN HCL [Concomitant]
     Indication: DIABETES MELLITUS
     Route: 048
     Dates: start: 19960101

REACTIONS (5)
  - FALL [None]
  - PRURITUS [None]
  - RASH MACULAR [None]
  - UPPER LIMB FRACTURE [None]
  - URTICARIA [None]
